FAERS Safety Report 9191371 (Version 4)
Quarter: 2013Q4

REPORT INFORMATION
  Report Type: Spontaneous
  Country: JP (occurrence: JP)
  Receive Date: 20130326
  Receipt Date: 20131009
  Transmission Date: 20140711
  Serious: Yes (Hospitalization, Other)
  Sender: FDA-Public Use
  Company Number: JP-JNJFOC-20130310621

PATIENT
  Age: 74 Year
  Sex: Male

DRUGS (7)
  1. DUROTEP MT [Suspect]
     Indication: PAIN
     Route: 062
     Dates: start: 20101022, end: 20130309
  2. DUROTEP MT [Suspect]
     Indication: PAIN
     Route: 062
     Dates: start: 201303
  3. FOIPAN [Concomitant]
     Route: 048
  4. GOSHAJINKIGAN [Concomitant]
     Route: 048
  5. GASMOTIN [Concomitant]
     Route: 048
  6. TERNELIN [Concomitant]
     Route: 048
  7. VOLTAREN [Concomitant]
     Indication: POST LAMINECTOMY SYNDROME
     Route: 054

REACTIONS (4)
  - Loss of consciousness [Recovered/Resolved]
  - Exposure to extreme temperature [Unknown]
  - White blood cell count increased [Unknown]
  - Pyrexia [Not Recovered/Not Resolved]
